FAERS Safety Report 13165639 (Version 1)
Quarter: 2017Q1

REPORT INFORMATION
  Report Type: Spontaneous
  Country: FR (occurrence: FR)
  Receive Date: 20170131
  Receipt Date: 20170131
  Transmission Date: 20170428
  Serious: Yes (Other)
  Sender: FDA-Public Use
  Company Number: FR-AXELLIA-001035

PATIENT
  Age: 56 Year
  Sex: Female

DRUGS (3)
  1. VANCOMYCIN [Suspect]
     Active Substance: VANCOMYCIN
     Indication: ANTIBIOTIC THERAPY
     Dosage: 1.5 G FOLLOWED BY A 3 G DAILY CONTINUOUS VANCOMYCIN PERFUSION
  2. TAZOCILIN [Concomitant]
     Indication: ANTIBIOTIC THERAPY
     Route: 042
  3. CASPOFUNGIN [Concomitant]
     Active Substance: CASPOFUNGIN
     Indication: ANTIBIOTIC THERAPY

REACTIONS (2)
  - Acute kidney injury [Recovered/Resolved]
  - Nephropathy [Recovered/Resolved]
